FAERS Safety Report 5175153-0 (Version None)
Quarter: 2006Q4

REPORT INFORMATION
  Report Type: 
  Country: None (occurrence: None)
  Receive Date: 20061214
  Receipt Date: 20060522
  Transmission Date: 20070319
  Serious: No
  Sender: FDA-Public Use
  Company Number: US-AMGEN-KDL180332

PATIENT
  Sex: Male

DRUGS (2)
  1. ENBREL [Suspect]
     Indication: PSORIATIC ARTHROPATHY
     Route: 058
     Dates: start: 20040501
  2. METHOTREXATE [Suspect]
     Dates: end: 20050101

REACTIONS (4)
  - HEPATIC ENZYME INCREASED [None]
  - PSORIASIS [None]
  - SCLERITIS [None]
  - UVEITIS [None]
